FAERS Safety Report 17195976 (Version 1)
Quarter: 2019Q4

REPORT INFORMATION
  Report Type: Report from Study
  Country: None (occurrence: IT)
  Receive Date: 20191224
  Receipt Date: 20191224
  Transmission Date: 20200122
  Serious: Yes (Hospitalization, Other)
  Sender: FDA-Public Use
  Company Number: IT-ABBVIE-19K-083-3203404-00

PATIENT
  Age: 78 Year
  Sex: Female

DRUGS (1)
  1. DUODOPA [Suspect]
     Active Substance: CARBIDOPA\LEVODOPA
     Indication: PARKINSON^S DISEASE
     Dosage: MD: 5,5+3??CR: 3,7??ED: 1,5
     Route: 050
     Dates: start: 20170130

REACTIONS (2)
  - Hypotension [Unknown]
  - Respiratory failure [Unknown]

NARRATIVE: CASE EVENT DATE: 201910
